FAERS Safety Report 4359850-2 (Version None)
Quarter: 2004Q2

REPORT INFORMATION
  Report Type: 
  Country: None (occurrence: None)
  Receive Date: 20040517
  Receipt Date: 20040428
  Transmission Date: 20050107
  Serious: Yes (Death, Hospitalization)
  Sender: FDA-Public Use
  Company Number: FI-AMGEN-UK053844

PATIENT
  Age: 77 Year
  Sex: Female
  Weight: 51 kg

DRUGS (7)
  1. ARANESP [Suspect]
     Indication: ANAEMIA OF MALIGNANT DISEASE
     Dosage: 150 MCG, 1 IN 1 WEEKS, SC
     Route: 058
     Dates: start: 20030618, end: 20031015
  2. ASPIRIN [Concomitant]
  3. BISOPROLOL [Concomitant]
  4. FUROSEMIDE [Concomitant]
  5. CYCLOPHOSPHAMIDE [Concomitant]
  6. PREDNISOLONE [Concomitant]
  7. OMEPRAZOLE [Concomitant]

REACTIONS (12)
  - ANGINA UNSTABLE [None]
  - ARTERIAL THROMBOSIS LIMB [None]
  - BACTERIAL INFECTION [None]
  - BLOOD CULTURE POSITIVE [None]
  - DEPRESSED LEVEL OF CONSCIOUSNESS [None]
  - HAEMATOMA [None]
  - HAEMOGLOBIN DECREASED [None]
  - INTERNATIONAL NORMALISED RATIO DECREASED [None]
  - PLATELET COUNT DECREASED [None]
  - SEPTIC SHOCK [None]
  - THERAPY NON-RESPONDER [None]
  - WHITE BLOOD CELL COUNT DECREASED [None]
